FAERS Safety Report 9015452 (Version 1)
Quarter: 2013Q1

REPORT INFORMATION
  Report Type: Spontaneous
  Country: US (occurrence: None)
  Receive Date: 20130102
  Receipt Date: 20130102
  Transmission Date: 20140127
  Serious: Yes (Hospitalization)
  Sender: FDA-Public Use
  Company Number: 2012GMK004540

PATIENT
  Age: 34 Year
  Sex: Female

DRUGS (4)
  1. CITALOPRAM HYDROBROMIDE [Suspect]
     Indication: PRODUCT USED FOR UNKNOWN INDICATION
  2. NAPROXEN (NAPROXEN) [Suspect]
     Indication: BURSITIS
  3. IBUPROFEN (IBUPROFEN) [Suspect]
     Indication: MUSCULOSKELETAL CHEST PAIN
  4. OXAPROZIN [Suspect]
     Indication: BURSITIS

REACTIONS (5)
  - Contusion [None]
  - Ecchymosis [None]
  - Increased tendency to bruise [None]
  - Drug interaction [None]
  - Musculoskeletal chest pain [None]
